FAERS Safety Report 25117106 (Version 2)
Quarter: 2025Q1

REPORT INFORMATION
  Report Type: Spontaneous
  Country: IT (occurrence: IT)
  Receive Date: 20250325
  Receipt Date: 20250328
  Transmission Date: 20250409
  Serious: Yes (Death, Hospitalization)
  Sender: ROCHE
  Company Number: None

PATIENT
  Age: 59 Year
  Sex: Female
  Weight: 78 kg

DRUGS (17)
  1. TECENTRIQ [Suspect]
     Active Substance: ATEZOLIZUMAB
     Indication: Small cell lung cancer
     Dosage: 1200 MG Q3W
     Route: 042
     Dates: start: 20250127, end: 20250127
  2. ETOPOSIDE [Suspect]
     Active Substance: ETOPOSIDE
     Indication: Small cell lung cancer
     Dosage: 181 MG DAYS 1, 2, 3 OF A 21-DAY CYCLE (TOTAL PER CYCLE: 544.02 MG)
     Route: 042
     Dates: start: 20250127, end: 20250129
  3. CARBOPLATIN [Suspect]
     Active Substance: CARBOPLATIN
     Indication: Small cell lung cancer
     Dosage: 600 MG Q3W
     Route: 042
     Dates: start: 20250127, end: 20250127
  4. ACETILCARNITINA [Concomitant]
     Dosage: 1 CPS X 2 / DIE
  5. ACETYLCYSTEINE [Concomitant]
     Active Substance: ACETYLCYSTEINE
     Dosage: ACETILCISTEINA  1 CPR X 2 / DIE
     Route: 048
  6. PREDNISONE [Concomitant]
     Active Substance: PREDNISONE
     Dosage: DELTACORTENE 25 MG 1/2 CPR DIE
     Route: 048
  7. ESTAZOLAM [Concomitant]
     Active Substance: ESTAZOLAM
     Dosage: ESILGAN 2 MG 1 CPR/DIE
     Route: 048
  8. FOSTER [Concomitant]
     Active Substance: BECLOMETHASONE\FORMOTEROL
     Dosage: 200 MCG 2 INHALES IN THE MORNING AND EVENING + 1 INHALATION IN THE AFTERNOON
     Route: 055
  9. FOSTER [Concomitant]
     Active Substance: BECLOMETHASONE\FORMOTEROL
     Dosage: 200 MCG 2 INHALES IN THE MORNING AND EVENING + 1 INHALATION IN THE AFTERNOON
  10. LYRICA [Concomitant]
     Active Substance: PREGABALIN
     Dosage: 150 MG IN THE MORNING AND 150 MG IN THE EVENING
     Route: 048
  11. MONTELUKAST [Concomitant]
     Active Substance: MONTELUKAST
     Dosage: 10 MG 1 CPR DIE ORE 8:00
     Route: 048
  12. QUETIAPINE [Concomitant]
     Active Substance: QUETIAPINE
     Dosage: QUETIAPINE 25 MG 1 TABLET/DAY
     Route: 048
  13. SPIRIVA [Concomitant]
     Active Substance: TIOTROPIUM BROMIDE MONOHYDRATE
     Dosage: 2 INHALATIONS IN THE AFTERNOON
     Route: 050
  14. VENLAFAXINE HYDROCHLORIDE [Concomitant]
     Active Substance: VENLAFAXINE HYDROCHLORIDE
     Dosage: VENLAFAXINA 75 MG ORE 8:00 + VENLAFAXINA 37,5 MG ORE 12:00
     Route: 048
  15. VENLAFAXINE HYDROCHLORIDE [Concomitant]
     Active Substance: VENLAFAXINE HYDROCHLORIDE
     Dosage: VENLAFAXINE 75 MG 8:00 AM + VENLAFAXINE 37.5 MG 12:00 PM
  16. ESOMEPRAZOLE [Concomitant]
     Active Substance: ESOMEPRAZOLE
     Dosage: 40 MG 1 TABLET/DAY
     Route: 048
  17. MEMANTINE HYDROCHLORIDE [Concomitant]
     Active Substance: MEMANTINE HYDROCHLORIDE
     Dosage: MEMANTINA 20 MG 1/2 CPR/DIE
     Route: 048

REACTIONS (2)
  - Leukopenia [Fatal]
  - Thrombocytopenia [Fatal]

NARRATIVE: CASE EVENT DATE: 20250206
